FAERS Safety Report 7956967-8 (Version None)
Quarter: 2011Q4

REPORT INFORMATION
  Report Type: 
  Country: None (occurrence: None)
  Receive Date: 20111205
  Receipt Date: 20111004
  Transmission Date: 20120403
  Serious: No
  Sender: FDA-Public Use
  Company Number: US-BAYER-2011-096064

PATIENT

DRUGS (4)
  1. ALEVE (CAPLET) [Suspect]
     Indication: ANALGESIC THERAPY
  2. CIPROFLOXACIN [Concomitant]
  3. ANTIBIOTICS [Concomitant]
  4. ACETAMINOPHEN [Concomitant]

REACTIONS (1)
  - PAIN [None]
